FAERS Safety Report 18669370 (Version 1)
Quarter: 2020Q4

REPORT INFORMATION
  Report Type: Spontaneous
  Country: CO (occurrence: CO)
  Receive Date: 20201228
  Receipt Date: 20201228
  Transmission Date: 20210114
  Serious: No
  Sender: FDA-Public Use
  Company Number: CO-AMGEN-COLSP2020190986

PATIENT
  Age: 75 Year
  Sex: Male

DRUGS (3)
  1. NEULASTIM [Suspect]
     Active Substance: PEGFILGRASTIM
     Dosage: UNK (6 MILLIGRAM/0.6 MILLILITERS)
     Route: 065
  2. NEULASTIM [Suspect]
     Active Substance: PEGFILGRASTIM
     Indication: PRODUCT USED FOR UNKNOWN INDICATION
     Dosage: UNK (6 MILLIGRAM/0.6 MILLILITERS)
     Route: 065
  3. NEULASTIM [Suspect]
     Active Substance: PEGFILGRASTIM
     Dosage: UNK (6 MILLIGRAM/0.6 MILLILITERS)
     Route: 065

REACTIONS (1)
  - Device occlusion [Unknown]

NARRATIVE: CASE EVENT DATE: 20201118
